FAERS Safety Report 4636739-2 (Version None)
Quarter: 2005Q2

REPORT INFORMATION
  Report Type: 
  Country: None (occurrence: None)
  Receive Date: 20050414
  Receipt Date: 20050331
  Transmission Date: 20051028
  Serious: Yes (Hospitalization)
  Sender: FDA-Public Use
  Company Number: 2005SE01178

PATIENT
  Age: 68 Year
  Sex: Female
  Weight: 55 kg

DRUGS (9)
  1. BLOPRESS [Suspect]
     Indication: HYPERTENSION
     Dosage: 12 MG QD PO
     Route: 048
     Dates: start: 20041105, end: 20050218
  2. OMEPRAL [Suspect]
     Indication: STOMATITIS
     Dosage: 20 MG QD PO
     Route: 048
     Dates: start: 20040409, end: 20050224
  3. AMARYL [Concomitant]
  4. MEVALOTIN [Concomitant]
  5. ASPIRIN [Concomitant]
  6. NORVASC [Concomitant]
  7. LASIX [Concomitant]
  8. ARTIST [Concomitant]
  9. KINEDAK [Concomitant]

REACTIONS (6)
  - CARDIAC FAILURE [None]
  - DYSPNOEA EXERTIONAL [None]
  - EOSINOPHILIC PNEUMONIA [None]
  - INTERSTITIAL LUNG DISEASE [None]
  - LUNG INFILTRATION [None]
  - VIRAL INFECTION [None]
